FAERS Safety Report 4980827-8 (Version None)
Quarter: 2006Q2

REPORT INFORMATION
  Report Type: 
  Country: None (occurrence: None)
  Receive Date: 20060424
  Receipt Date: 20051114
  Transmission Date: 20061013
  Serious: Yes (Hospitalization)
  Sender: FDA-Public Use
  Company Number: US-MERCK-0511USA02674

PATIENT
  Age: 41 Year
  Sex: Female
  Weight: 100 kg

DRUGS (10)
  1. VIOXX [Suspect]
     Indication: ARTHRALGIA
     Route: 048
     Dates: start: 20000101
  2. VIOXX [Suspect]
     Indication: ARTHRITIS
     Route: 048
     Dates: start: 20000101
  3. ASPIRIN [Concomitant]
     Route: 065
  4. ZYRTEC [Concomitant]
     Route: 065
  5. ZESTORETIC [Concomitant]
     Route: 065
  6. ANTIMICROBIAL (UNSPECIFIED) [Concomitant]
     Route: 065
  7. [THERAPY UNSPECIFIED] [Concomitant]
     Route: 065
  8. ALTACE [Concomitant]
     Route: 065
     Dates: start: 20030101
  9. LEXAPRO [Concomitant]
     Route: 065
  10. EFFEXOR [Concomitant]
     Route: 065

REACTIONS (8)
  - ANGINA PECTORIS [None]
  - ANGIOPATHY [None]
  - CARDIAC FAILURE CONGESTIVE [None]
  - DEPRESSION [None]
  - GENERAL SYMPTOM [None]
  - HEADACHE [None]
  - INJURY [None]
  - STAPHYLOCOCCAL INFECTION [None]
